FAERS Safety Report 8563906 (Version 6)
Quarter: 2013Q1

REPORT INFORMATION
  Report Type: Spontaneous
  Country: US (occurrence: US)
  Receive Date: 20120515
  Receipt Date: 20130329
  Transmission Date: 20140127
  Serious: Yes (Death, Hospitalization)
  Sender: FDA-Public Use
  Company Number: US-ELI_LILLY_AND_COMPANY-US201203005795

PATIENT
  Sex: Female
  Weight: 43.08 kg

DRUGS (6)
  1. FORTEO [Suspect]
     Indication: OSTEOPOROSIS
     Dosage: UNK, QD
     Route: 058
     Dates: start: 201109
  2. FORTEO [Suspect]
     Dosage: UNK, QD
     Route: 058
  3. VALPROIC ACID [Concomitant]
     Indication: CONVULSION
     Dosage: UNK
  4. TRAZODONE [Concomitant]
     Dosage: UNK
  5. SEROQUEL [Concomitant]
     Dosage: UNK
  6. FLUCONAZOLE [Concomitant]
     Dosage: UNK

REACTIONS (9)
  - Aspiration [Fatal]
  - Pneumonia aspiration [Fatal]
  - Convulsion [Fatal]
  - Pneumonia [Recovered/Resolved]
  - Convulsion [Unknown]
  - Nausea [Unknown]
  - Abdominal pain lower [Unknown]
  - Gastrostomy [Unknown]
  - Vomiting [Unknown]
